FAERS Safety Report 13935684 (Version 8)
Quarter: 2018Q2

REPORT INFORMATION
  Report Type: Report from Study
  Country: None (occurrence: US)
  Receive Date: 20170905
  Receipt Date: 20180508
  Transmission Date: 20180711
  Serious: Yes (Hospitalization, Disabling, Other)
  Sender: FDA-Public Use
  Company Number: US-ABBVIE-17K-163-2089744-00

PATIENT
  Age: 57 Year
  Sex: Male
  Weight: 86.26 kg

DRUGS (16)
  1. PROCARDIA XL [Suspect]
     Active Substance: NIFEDIPINE
     Indication: HYPERTENSION
  2. FOLIC ACID. [Concomitant]
     Active Substance: FOLIC ACID
     Indication: PRODUCT USED FOR UNKNOWN INDICATION
  3. LISINOPRIL. [Concomitant]
     Active Substance: LISINOPRIL
     Indication: PRODUCT USED FOR UNKNOWN INDICATION
  4. DETROL LA [Concomitant]
     Active Substance: TOLTERODINE TARTRATE
     Indication: PRODUCT USED FOR UNKNOWN INDICATION
  5. CARVEDILOL. [Concomitant]
     Active Substance: CARVEDILOL
     Indication: PRODUCT USED FOR UNKNOWN INDICATION
  6. FINASTERIDE. [Concomitant]
     Active Substance: FINASTERIDE
     Indication: PRODUCT USED FOR UNKNOWN INDICATION
  7. PRAVASTATIN. [Concomitant]
     Active Substance: PRAVASTATIN
     Indication: PRODUCT USED FOR UNKNOWN INDICATION
  8. INSPRA [Concomitant]
     Active Substance: EPLERENONE
     Indication: PRODUCT USED FOR UNKNOWN INDICATION
  9. HUMIRA [Suspect]
     Active Substance: ADALIMUMAB
     Indication: RHEUMATOID ARTHRITIS
     Route: 058
     Dates: start: 2014
  10. HUMIRA [Suspect]
     Active Substance: ADALIMUMAB
     Route: 058
     Dates: start: 20161025
  11. PROCARDIA XL [Suspect]
     Active Substance: NIFEDIPINE
     Indication: CARDIOVASCULAR DISORDER
     Route: 065
     Dates: start: 201701
  12. ASPIRIN. [Concomitant]
     Active Substance: ASPIRIN
     Indication: PRODUCT USED FOR UNKNOWN INDICATION
  13. TYLENOL [Concomitant]
     Active Substance: ACETAMINOPHEN
     Indication: PAIN
  14. LANSOPRAZOLE. [Concomitant]
     Active Substance: LANSOPRAZOLE
     Indication: PRODUCT USED FOR UNKNOWN INDICATION
  15. PREDNISONE. [Suspect]
     Active Substance: PREDNISONE
     Indication: INTERVERTEBRAL DISC DEGENERATION
     Route: 065
     Dates: start: 2016, end: 2016
  16. NITROGLYCERIN. [Concomitant]
     Active Substance: NITROGLYCERIN
     Indication: RAYNAUD^S PHENOMENON

REACTIONS (50)
  - Spinal cord lipoma [Unknown]
  - Dyspnoea [Recovered/Resolved]
  - Macular oedema [Recovering/Resolving]
  - Intervertebral disc degeneration [Not Recovered/Not Resolved]
  - Dizziness [Unknown]
  - Intervertebral discitis [Unknown]
  - Cartilage atrophy [Not Recovered/Not Resolved]
  - Rheumatoid arthritis [Not Recovered/Not Resolved]
  - Sciatica [Recovered/Resolved]
  - Peripheral swelling [Unknown]
  - Tendonitis [Not Recovered/Not Resolved]
  - Retinal oedema [Unknown]
  - Joint range of motion decreased [Unknown]
  - Pain in jaw [Recovered/Resolved]
  - Body height decreased [Not Recovered/Not Resolved]
  - Raynaud^s phenomenon [Unknown]
  - Osteoarthritis [Unknown]
  - Pain [Unknown]
  - Disability [Unknown]
  - Joint noise [Not Recovered/Not Resolved]
  - Throat irritation [Recovered/Resolved]
  - Rotator cuff syndrome [Unknown]
  - Vision blurred [Unknown]
  - Rash vesicular [Unknown]
  - Pain in extremity [Unknown]
  - Rheumatoid nodule [Not Recovered/Not Resolved]
  - Visual acuity reduced [Unknown]
  - Dyskinesia [Recovered/Resolved]
  - Arthritis [Unknown]
  - Chest pain [Recovered/Resolved]
  - Limb injury [Not Recovered/Not Resolved]
  - Exostosis [Unknown]
  - Poor peripheral circulation [Unknown]
  - Fall [Recovered/Resolved]
  - Arthropathy [Unknown]
  - Hypertension [Not Recovered/Not Resolved]
  - Mobility decreased [Not Recovered/Not Resolved]
  - Eye discharge [Recovered/Resolved]
  - Sensitivity to weather change [Unknown]
  - Musculoskeletal stiffness [Unknown]
  - Coronary artery disease [Not Recovered/Not Resolved]
  - Headache [Recovered/Resolved]
  - Confusional state [Recovered/Resolved]
  - Bronchitis [Unknown]
  - Cerebrovascular accident [Unknown]
  - Ligament sprain [Unknown]
  - Fatigue [Not Recovered/Not Resolved]
  - Hypotension [Unknown]
  - Rheumatoid arthritis [Unknown]
  - Rheumatoid arthritis [Recovered/Resolved]

NARRATIVE: CASE EVENT DATE: 2015
